FAERS Safety Report 4867062-9 (Version None)
Quarter: 2005Q4

REPORT INFORMATION
  Report Type: 
  Country: None (occurrence: None)
  Receive Date: 20051221
  Receipt Date: 20051216
  Transmission Date: 20060501
  Serious: Yes (Other)
  Sender: FDA-Public Use
  Company Number: HQWYE606422SEP05

PATIENT
  Age: 17 Year
  Sex: Female

DRUGS (1)
  1. PANTOPRAZOLE SODIUM [Suspect]
     Indication: DYSPEPSIA
     Dosage: 40 MG 1X PER 1 DAY ORAL
     Route: 048
     Dates: start: 20050701, end: 20050101

REACTIONS (1)
  - ANGIONEUROTIC OEDEMA [None]
